FAERS Safety Report 9751653 (Version 1)
Quarter: 2013Q4

REPORT INFORMATION
  Report Type: Spontaneous
  Country: GB (occurrence: GB)
  Receive Date: 20131212
  Receipt Date: 20131212
  Transmission Date: 20140711
  Serious: Yes (Hospitalization)
  Sender: FDA-Public Use
  Company Number: GB-ASTRAZENECA-2013SE89452

PATIENT
  Age: 25737 Day
  Sex: Female

DRUGS (8)
  1. BRILIQUE [Suspect]
     Indication: MYOCARDIAL INFARCTION
     Route: 048
     Dates: start: 2013
  2. ASPIRIN [Concomitant]
  3. ATORVASTATIN [Concomitant]
  4. OMEPRAZOLE [Concomitant]
     Dosage: GENERIC
  5. SPIRONOLACTONE [Concomitant]
  6. FUROSEMIDE [Concomitant]
  7. BENZYLPENICILLIN [Concomitant]
     Indication: INFECTION
  8. CLARITHROMYCIN [Concomitant]
     Indication: INFECTION

REACTIONS (2)
  - Infective exacerbation of chronic obstructive airways disease [Unknown]
  - Dyspnoea [Unknown]
